FAERS Safety Report 17925902 (Version 3)
Quarter: 2020Q4

REPORT INFORMATION
  Report Type: Report from Study
  Country: US (occurrence: US)
  Receive Date: 20200622
  Receipt Date: 20201112
  Transmission Date: 20210113
  Serious: Yes (Other)
  Sender: FDA-Public Use
  Company Number: NVSC2020US172119

PATIENT
  Sex: Male

DRUGS (1)
  1. ENTRESTO [Suspect]
     Active Substance: SACUBITRIL\VALSARTAN
     Indication: CARDIAC FAILURE
     Dosage: UNK
     Route: 065
     Dates: start: 20200618

REACTIONS (4)
  - Alopecia [Not Recovered/Not Resolved]
  - Dementia [Unknown]
  - Trichorrhexis [Not Recovered/Not Resolved]
  - Sleep apnoea syndrome [Unknown]
